FAERS Safety Report 24420095 (Version 2)
Quarter: 2024Q4

REPORT INFORMATION
  Report Type: Report from Study
  Country: US (occurrence: US)
  Receive Date: 20241010
  Receipt Date: 20241018
  Transmission Date: 20250115
  Serious: No
  Sender: ROCHE
  Company Number: US-ROCHE-3513715

PATIENT
  Age: 22 Year
  Sex: Male

DRUGS (6)
  1. CATHFLO ACTIVASE [Suspect]
     Active Substance: ALTEPLASE
     Indication: Acute kidney injury
     Route: 065
  2. CATHFLO ACTIVASE [Suspect]
     Active Substance: ALTEPLASE
     Indication: Intervertebral discitis
     Route: 065
     Dates: start: 20240208
  3. CATHFLO ACTIVASE [Suspect]
     Active Substance: ALTEPLASE
     Indication: Diabetic ketoacidosis
     Route: 065
     Dates: start: 20240209
  4. CATHFLO ACTIVASE [Suspect]
     Active Substance: ALTEPLASE
     Route: 065
     Dates: start: 20240210
  5. CATHFLO ACTIVASE [Suspect]
     Active Substance: ALTEPLASE
     Route: 065
     Dates: start: 20240211
  6. CATHFLO ACTIVASE [Suspect]
     Active Substance: ALTEPLASE
     Route: 065
     Dates: start: 20240212

REACTIONS (2)
  - Off label use [Unknown]
  - No adverse event [Unknown]
